FAERS Safety Report 4867745-0 (Version None)
Quarter: 2005Q4

REPORT INFORMATION
  Report Type: 
  Country: None (occurrence: None)
  Receive Date: 20051223
  Receipt Date: 20051223
  Transmission Date: 20060501
  Serious: Yes (Life-Threatening, Other)
  Sender: FDA-Public Use
  Company Number: None

PATIENT
  Age: 58 Year
  Sex: Male
  Weight: 79.8331 kg

DRUGS (2)
  1. CYMBALTA [Suspect]
     Indication: NEURALGIA
     Dosage: 1 30 MG DAILY PO
     Route: 048
     Dates: start: 20051001, end: 20051122
  2. CYMBALTA [Suspect]
     Indication: NEURALGIA
     Dosage: 1 60 MG DAILY PO
     Route: 048
     Dates: start: 20051104, end: 20051122

REACTIONS (10)
  - ABNORMAL DREAMS [None]
  - BLOOD PRESSURE DIASTOLIC INCREASED [None]
  - BLOOD PRESSURE SYSTOLIC INCREASED [None]
  - DIZZINESS [None]
  - FATIGUE [None]
  - HYPERSOMNIA [None]
  - MALAISE [None]
  - MOOD ALTERED [None]
  - PAIN [None]
  - SKIN DISCOLOURATION [None]
